FAERS Safety Report 13069465 (Version 2)
Quarter: 2017Q1

REPORT INFORMATION
  Report Type: Spontaneous
  Country: US (occurrence: US)
  Receive Date: 20161228
  Receipt Date: 20170123
  Transmission Date: 20170428
  Serious: Yes (Other)
  Sender: FDA-Public Use
  Company Number: US-PFIZER INC-2016596508

PATIENT

DRUGS (3)
  1. BACITRACIN. [Suspect]
     Active Substance: BACITRACIN
     Indication: IRRIGATION THERAPY
     Dosage: 50000 IU, UNK(50,000 UNITS TOPICALLY APPLIED TO THE SURGICAL FIELD)
     Route: 061
  2. NORMAL SALINE [Suspect]
     Active Substance: SODIUM CHLORIDE
     Indication: IRRIGATION THERAPY
     Dosage: UNK
  3. NORMAL SALINE [Suspect]
     Active Substance: SODIUM CHLORIDE
     Indication: VEHICLE SOLUTION USE

REACTIONS (5)
  - Postoperative wound infection [Unknown]
  - Product colour issue [Unknown]
  - Poor quality drug administered [Unknown]
  - Incorrect route of drug administration [Unknown]
  - Product quality issue [Unknown]

NARRATIVE: CASE EVENT DATE: 2016
